FAERS Safety Report 11253004 (Version 4)
Quarter: 2015Q4

REPORT INFORMATION
  Report Type: Spontaneous
  Country: HU (occurrence: HU)
  Receive Date: 20150708
  Receipt Date: 20151028
  Transmission Date: 20160304
  Serious: Yes (Death, Hospitalization, Other)
  Sender: FDA-Public Use
  Company Number: HU-ABBVIE-15P-076-1419125-00

PATIENT
  Age: 54 Year
  Sex: Male
  Weight: 80 kg

DRUGS (6)
  1. CONTROLOC [Concomitant]
     Active Substance: PANTOPRAZOLE SODIUM
     Indication: PRODUCT USED FOR UNKNOWN INDICATION
  2. VIEKIRAX [Suspect]
     Active Substance: OMBITASVIR\PARITAPREVIR\RITONAVIR
     Indication: HEPATITIS C
     Route: 048
     Dates: start: 20150617, end: 20150626
  3. LEGALON [Concomitant]
     Active Substance: MILK THISTLE
     Indication: PRODUCT USED FOR UNKNOWN INDICATION
  4. VEROSPIRON [Concomitant]
     Active Substance: SPIRONOLACTONE
     Indication: PRODUCT USED FOR UNKNOWN INDICATION
  5. EXVIERA [Suspect]
     Active Substance: DASABUVIR
     Indication: HEPATITIS C
     Route: 048
     Dates: start: 20150617, end: 20150626
  6. FUROSEMID [Concomitant]
     Active Substance: FUROSEMIDE
     Indication: PRODUCT USED FOR UNKNOWN INDICATION

REACTIONS (8)
  - Clostridium difficile infection [Fatal]
  - Hepatorenal syndrome [Fatal]
  - Hepatic failure [Fatal]
  - Renal failure [Fatal]
  - Hepatic cirrhosis [Fatal]
  - Cholelithiasis [Unknown]
  - Dehydration [Fatal]
  - Flatulence [Fatal]

NARRATIVE: CASE EVENT DATE: 20150626
